FAERS Safety Report 9777679 (Version 1)
Quarter: 2013Q4

REPORT INFORMATION
  Report Type: Spontaneous
  Country: GB (occurrence: GB)
  Receive Date: 20131223
  Receipt Date: 20131223
  Transmission Date: 20140711
  Serious: Yes (Hospitalization)
  Sender: FDA-Public Use
  Company Number: GB-ROCHE-1322780

PATIENT
  Age: 78 Year
  Sex: Female
  Weight: 48 kg

DRUGS (9)
  1. CLONAZEPAM [Suspect]
     Indication: RESTLESS LEGS SYNDROME
     Route: 048
  2. CLONAZEPAM [Suspect]
     Route: 048
     Dates: start: 20131128
  3. CLONAZEPAM [Suspect]
     Route: 048
  4. ASPIRIN [Concomitant]
  5. ATENOLOL [Concomitant]
  6. CEFALEXIN MONOHYDRATE [Concomitant]
  7. LISINOPRIL [Concomitant]
  8. MIRTAZAPINE [Concomitant]
  9. SIMVASTATIN [Concomitant]

REACTIONS (1)
  - Unresponsive to stimuli [Recovered/Resolved]
